FAERS Safety Report 13031832 (Version 1)
Quarter: 2016Q4

REPORT INFORMATION
  Report Type: Spontaneous
  Country: US (occurrence: US)
  Receive Date: 20161215
  Receipt Date: 20161215
  Transmission Date: 20170207
  Serious: No
  Sender: FDA-Public Use
  Company Number: US-PFIZER INC-2016568682

PATIENT
  Age: 68 Year

DRUGS (1)
  1. ENALAPRILAT. [Suspect]
     Active Substance: ENALAPRILAT
     Dosage: UNK

REACTIONS (5)
  - Asthenia [Unknown]
  - Drug hypersensitivity [Unknown]
  - Somnolence [Unknown]
  - Arthralgia [Unknown]
  - Dizziness [Unknown]
